FAERS Safety Report 13960255 (Version 1)
Quarter: 2017Q3

REPORT INFORMATION
  Report Type: Spontaneous
  Country: US (occurrence: US)
  Receive Date: 20170912
  Receipt Date: 20170912
  Transmission Date: 20171128
  Serious: Yes (Life-Threatening, Other)
  Sender: FDA-Public Use
  Company Number: None

PATIENT
  Age: 53 Year
  Sex: Female
  Weight: 85.5 kg

DRUGS (9)
  1. DEXILANT [Concomitant]
     Active Substance: DEXLANSOPRAZOLE
  2. VITAMIN D [Concomitant]
     Active Substance: CHOLECALCIFEROL
  3. VITAMIN B COMPLEX [Concomitant]
     Active Substance: CYANOCOBALAMIN\DEXPANTHENOL\NIACINAMIDE\PYRIDOXINE HYDROCHLORIDE\RIBOFLAVIN 5^-PHOSPHATE SODIUM\THIAMINE HYDROCHLORIDE\VITAMIN B COMPLEX
  4. SLEEP APNEA MACHINE [Concomitant]
  5. FELODOPINE [Concomitant]
  6. FOLIC ACID. [Concomitant]
     Active Substance: FOLIC ACID
  7. TYLENOL FOR MIGRAINES [Concomitant]
  8. LOSARTAN. [Concomitant]
     Active Substance: LOSARTAN
  9. LAMICTAL [Suspect]
     Active Substance: LAMOTRIGINE
     Indication: BIPOLAR DISORDER
     Dosage: ?          QUANTITY:2 TABLET(S);?
     Route: 048
     Dates: start: 20070101, end: 20170101

REACTIONS (13)
  - Gastrointestinal pain [None]
  - Pruritus [None]
  - Withdrawal syndrome [None]
  - Vitamin D deficiency [None]
  - Vision blurred [None]
  - Cerebrovascular accident [None]
  - Muscle twitching [None]
  - Nausea [None]
  - Blood glucose increased [None]
  - Migraine [None]
  - Serotonin syndrome [None]
  - Abdominal distension [None]
  - Vertigo [None]

NARRATIVE: CASE EVENT DATE: 20170101
